FAERS Safety Report 5423161-4 (Version None)
Quarter: 2007Q3

REPORT INFORMATION
  Report Type: 
  Country: None (occurrence: None)
  Receive Date: 20070821
  Receipt Date: 20070814
  Transmission Date: 20080115
  Serious: Yes (Other)
  Sender: FDA-Public Use
  Company Number: 2007AL003087

PATIENT
  Age: 70 Year
  Sex: Female

DRUGS (14)
  1. MELOXICAM                               (ATLLC) [Suspect]
     Dosage: 7.5 MG; QD; PO
     Route: 048
     Dates: start: 20070404, end: 20070606
  2. ACOMPLIA [Concomitant]
  3. LEVOTHYROXINE SODIUM [Concomitant]
  4. ATROVENT [Concomitant]
  5. QVAR 40 [Concomitant]
  6. METFORMIN HCL [Concomitant]
  7. ZOPICLONE [Concomitant]
  8. MIZOLASTINE [Concomitant]
  9. NEDOCROMIL SODIUM [Concomitant]
  10. SENNA [Concomitant]
  11. TEMAZEPAM [Concomitant]
  12. FELDENE [Concomitant]
  13. MOMETASONE FUROATE [Concomitant]
  14. TRIMEPRAZINE [Concomitant]

REACTIONS (7)
  - CARDIAC FLUTTER [None]
  - DIARRHOEA [None]
  - EPISTAXIS [None]
  - FATIGUE [None]
  - HEART RATE INCREASED [None]
  - HYPERTENSION [None]
  - TREMOR [None]
